FAERS Safety Report 8543084-1 (Version None)
Quarter: 2012Q3

REPORT INFORMATION
  Report Type: 
  Country: None (occurrence: None)
  Receive Date: 20120727
  Receipt Date: 20110920
  Transmission Date: 20120928
  Serious: No
  Sender: FDA-Public Use
  Company Number: US-MYLANLABS-2011S1014970

PATIENT
  Age: 74 Year
  Sex: Female

DRUGS (5)
  1. LITHIUM CARBONATE [Concomitant]
  2. LAMOTRIGINE [Concomitant]
  3. LEVOTHYROXINE SODIUM [Suspect]
     Indication: HYPOTHYROIDISM
     Dates: start: 20110501, end: 20110601
  4. LEVOTHYROXINE SODIUM [Suspect]
     Dates: start: 20110101
  5. XANAX [Concomitant]

REACTIONS (4)
  - ARTHRALGIA [None]
  - ARTHRITIS [None]
  - OEDEMA PERIPHERAL [None]
  - MYALGIA [None]
